FAERS Safety Report 19159760 (Version 2)
Quarter: 2025Q2

REPORT INFORMATION
  Report Type: Spontaneous
  Country: US (occurrence: US)
  Receive Date: 20210420
  Receipt Date: 20250416
  Transmission Date: 20250717
  Serious: No
  Sender: ENDO
  Company Number: US-ENDO PHARMACEUTICALS INC-2021-000792

PATIENT
  Sex: Male

DRUGS (2)
  1. AVEED [Suspect]
     Active Substance: TESTOSTERONE UNDECANOATE
     Indication: Testicular failure
     Route: 051
     Dates: start: 20171207
  2. NUVIGIL [Concomitant]
     Active Substance: ARMODAFINIL
     Indication: Product used for unknown indication
     Route: 065

REACTIONS (2)
  - Somnolence [Unknown]
  - Inappropriate schedule of product administration [Unknown]
